FAERS Safety Report 16109875 (Version 2)
Quarter: 2019Q2

REPORT INFORMATION
  Report Type: Spontaneous
  Country: US (occurrence: US)
  Receive Date: 20190325
  Receipt Date: 20190513
  Transmission Date: 20190711
  Serious: No
  Sender: FDA-Public Use
  Company Number: US-ASTRAZENECA-2019SE32397

PATIENT
  Age: 73 Year
  Sex: Male

DRUGS (4)
  1. BEVESPI AEROSPHERE [Suspect]
     Active Substance: FORMOTEROL FUMARATE\GLYCOPYRROLATE
     Indication: WHEEZING
     Dosage: ONE PUFF TWICE A DAY
     Route: 055
     Dates: start: 2018
  2. BEVESPI AEROSPHERE [Suspect]
     Active Substance: FORMOTEROL FUMARATE\GLYCOPYRROLATE
     Indication: WHEEZING
     Dosage: TWO PUFFS TWICE A DAY,
     Route: 055
     Dates: start: 2018
  3. BEVESPI AEROSPHERE [Suspect]
     Active Substance: FORMOTEROL FUMARATE\GLYCOPYRROLATE
     Indication: DYSPNOEA
     Dosage: ONE PUFF TWICE A DAY
     Route: 055
     Dates: start: 2018
  4. BEVESPI AEROSPHERE [Suspect]
     Active Substance: FORMOTEROL FUMARATE\GLYCOPYRROLATE
     Indication: DYSPNOEA
     Dosage: TWO PUFFS TWICE A DAY,
     Route: 055
     Dates: start: 2018

REACTIONS (6)
  - Medication error [Not Recovered/Not Resolved]
  - Anger [Recovering/Resolving]
  - Intentional device misuse [Unknown]
  - Device issue [Unknown]
  - Product use in unapproved indication [Unknown]
  - Off label use [Unknown]

NARRATIVE: CASE EVENT DATE: 2018
